FAERS Safety Report 8828727 (Version 1)
Quarter: 2012Q4

REPORT INFORMATION
  Report Type: 
  Country: US (occurrence: US)
  Receive Date: 20121008
  Receipt Date: 20121008
  Transmission Date: 20130627
  Serious: Yes (Other)
  Sender: FDA-Public Use
  Company Number: US-ROCHE-1134222

PATIENT
  Sex: Female
  Weight: 69.92 kg

DRUGS (2)
  1. RITUXAN [Suspect]
     Indication: THROMBOCYTOPENIA
     Dosage: 650
     Route: 065
     Dates: start: 20011115
  2. RITUXAN [Suspect]
     Indication: OFF LABEL USE

REACTIONS (5)
  - Splenomegaly [Unknown]
  - Night sweats [Unknown]
  - Pruritus [Unknown]
  - Skin discolouration [Unknown]
  - Peripheral coldness [Unknown]
